FAERS Safety Report 4984549-9 (Version None)
Quarter: 2006Q2

REPORT INFORMATION
  Report Type: 
  Country: None (occurrence: None)
  Receive Date: 20060427
  Receipt Date: 20050311
  Transmission Date: 20061013
  Serious: No
  Sender: FDA-Public Use
  Company Number: US-GLAXOSMITHKLINE-A0549438A

PATIENT
  Age: 62 Year
  Sex: Male

DRUGS (1)
  1. DEXEDRINE [Suspect]
     Dosage: 15MG THREE TIMES PER DAY
     Route: 048
     Dates: start: 20030301, end: 20040901

REACTIONS (2)
  - DRUG INEFFECTIVE [None]
  - PHARMACEUTICAL PRODUCT COMPLAINT [None]
